FAERS Safety Report 7285256-2 (Version None)
Quarter: 2011Q1

REPORT INFORMATION
  Report Type: 
  Country: None (occurrence: None)
  Receive Date: 20110210
  Receipt Date: 20110204
  Transmission Date: 20110831
  Serious: Yes (Other)
  Sender: FDA-Public Use
  Company Number: JP-GENZYME-FLUD-1000701

PATIENT
  Age: 4 Year
  Sex: Female

DRUGS (3)
  1. CYCLOSPORINE [Concomitant]
     Indication: PROPHYLAXIS AGAINST GRAFT VERSUS HOST DISEASE
     Dosage: 3 MG/KG, QD
     Route: 042
  2. FLUDARA [Suspect]
     Indication: STEM CELL TRANSPLANT
     Dosage: 180 MG/M2, UNK
     Route: 065
  3. MELPHALAN [Suspect]
     Indication: STEM CELL TRANSPLANT
     Dosage: 140 MG/M2, UNK
     Route: 065

REACTIONS (1)
  - ACUTE GRAFT VERSUS HOST DISEASE [None]
